FAERS Safety Report 5977112-4 (Version None)
Quarter: 2008Q4

REPORT INFORMATION
  Report Type: 
  Country: None (occurrence: None)
  Receive Date: 20081202
  Receipt Date: 20081202
  Transmission Date: 20090506
  Serious: Yes (Other)
  Sender: FDA-Public Use
  Company Number: None

PATIENT
  Sex: Female
  Weight: 30 kg

DRUGS (8)
  1. SIROLIMUS ORAL SOLUTION 1 MG/ML [Suspect]
     Indication: NEUROFIBROMATOSIS
     Dosage: 1.8 MG BID ORAL
     Route: 048
     Dates: start: 20080828, end: 20080904
  2. SIROLIMUS ORAL SOLUTION 1 MG/ML [Suspect]
     Dosage: 1.0 MG BID ORAL
     Route: 048
     Dates: start: 20080811, end: 20080828
  3. LYRICA [Concomitant]
  4. DEPAKOTE [Concomitant]
  5. CELEBREX [Concomitant]
  6. MS CONTIN [Concomitant]
  7. PERCOCET [Concomitant]
  8. TYLENOL (CAPLET) [Concomitant]

REACTIONS (3)
  - ALANINE AMINOTRANSFERASE INCREASED [None]
  - ASPARTATE AMINOTRANSFERASE INCREASED [None]
  - GAMMA-GLUTAMYLTRANSFERASE INCREASED [None]
